FAERS Safety Report 4378165-X (Version None)
Quarter: 2004Q2

REPORT INFORMATION
  Report Type: 
  Country: None (occurrence: None)
  Receive Date: 20040616
  Receipt Date: 20040602
  Transmission Date: 20050107
  Serious: Yes (Hospitalization)
  Sender: FDA-Public Use
  Company Number: PHBS2004ES07283

PATIENT
  Age: 43 Year
  Sex: Male

DRUGS (1)
  1. TRILEPTAL [Suspect]
     Indication: TEMPORAL LOBE EPILEPSY
     Dates: start: 20021215, end: 20040512

REACTIONS (3)
  - DYSTONIA [None]
  - MUSCLE SPASMS [None]
  - PAIN [None]
